FAERS Safety Report 7241457-0 (Version None)
Quarter: 2011Q1

REPORT INFORMATION
  Report Type: 
  Country: None (occurrence: None)
  Receive Date: 20110114
  Receipt Date: 20110104
  Transmission Date: 20110831
  Serious: Yes (Other)
  Sender: FDA-Public Use
  Company Number: 2523595-2011-00001

PATIENT
  Age: 57 Year
  Sex: Female

DRUGS (1)
  1. UVADEX [Suspect]
     Indication: GRAFT VERSUS HOST DISEASE
     Dosage: PER ECP TREATMENT
     Dates: start: 20101120, end: 20101228

REACTIONS (6)
  - TACHYCARDIA [None]
  - CHEST DISCOMFORT [None]
  - HAEMORRHAGE INTRACRANIAL [None]
  - CHEST PAIN [None]
  - ABDOMINAL PAIN UPPER [None]
  - RESPIRATION ABNORMAL [None]
